FAERS Safety Report 6216427-1 (Version None)
Quarter: 2009Q2

REPORT INFORMATION
  Report Type: 
  Country: None (occurrence: None)
  Receive Date: 20090603
  Receipt Date: 20090603
  Transmission Date: 20091009
  Serious: Yes (Other)
  Sender: FDA-Public Use
  Company Number: None

PATIENT
  Sex: Female
  Weight: 94 kg

DRUGS (1)
  1. HYDROXYUREA [Suspect]
     Dosage: 2500MG DAILY

REACTIONS (6)
  - DRY GANGRENE [None]
  - FATIGUE [None]
  - HYPERTENSION [None]
  - IMPAIRED HEALING [None]
  - PLATELET COUNT DECREASED [None]
  - TREATMENT NONCOMPLIANCE [None]
